FAERS Safety Report 9730491 (Version 1)
Quarter: 2013Q4

REPORT INFORMATION
  Report Type: Spontaneous
  Country: BR (occurrence: BR)
  Receive Date: 20131202
  Receipt Date: 20131202
  Transmission Date: 20140711
  Serious: Yes (Hospitalization, Other)
  Sender: FDA-Public Use
  Company Number: BR-009507513-1311BRA013007

PATIENT
  Age: 20 Year
  Sex: Female
  Weight: 62 kg

DRUGS (2)
  1. MERCILON [Suspect]
     Indication: CONTRACEPTION
     Dosage: UNK
     Route: 048
     Dates: start: 2009, end: 2010
  2. MERCILON [Suspect]
     Dosage: UNK
     Dates: start: 201112

REACTIONS (10)
  - Premature delivery [Unknown]
  - Postoperative wound infection [Recovered/Resolved]
  - Caesarean section [Unknown]
  - Cervical incompetence [Unknown]
  - Withdrawal bleed [Recovered/Resolved]
  - Amenorrhoea [Not Recovered/Not Resolved]
  - Vomiting [Unknown]
  - Nausea [Unknown]
  - Drug administration error [Unknown]
  - Maternal exposure before pregnancy [Unknown]
